FAERS Safety Report 18285953 (Version 2)
Quarter: 2020Q3

REPORT INFORMATION
  Report Type: Report from Study
  Country: US (occurrence: US)
  Receive Date: 20200919
  Receipt Date: 20200923
  Transmission Date: 20201103
  Serious: No
  Sender: FDA-Public Use
  Company Number: NVSC2020US254156

PATIENT
  Sex: Male

DRUGS (1)
  1. COSENTYX [Suspect]
     Active Substance: SECUKINUMAB
     Indication: PSORIASIS
     Dosage: 300 MG, Q4W (BENEATH THE SKIN,USUALLY VIA INJECTION)
     Route: 058

REACTIONS (3)
  - Underdose [Unknown]
  - Psoriasis [Unknown]
  - Device use issue [Unknown]
